FAERS Safety Report 12433553 (Version 1)
Quarter: 2016Q2

REPORT INFORMATION
  Report Type: Spontaneous
  Country: US (occurrence: US)
  Receive Date: 20160603
  Receipt Date: 20160603
  Transmission Date: 20160815
  Serious: No
  Sender: FDA-Public Use
  Company Number: US-BAYER-2016-100631

PATIENT
  Age: 84 Year
  Sex: Female
  Weight: 63.39 kg

DRUGS (1)
  1. ALEVE [Suspect]
     Active Substance: NAPROXEN SODIUM
     Indication: MUSCULOSKELETAL PAIN
     Dosage: 1 DF, QD (EVERY MORNING) AFTER BREAKFASF
     Route: 048
     Dates: start: 201602, end: 20160523

REACTIONS (3)
  - Glomerular filtration rate decreased [None]
  - Product use issue [None]
  - Product use issue [None]

NARRATIVE: CASE EVENT DATE: 201602
